FAERS Safety Report 17209350 (Version 1)
Quarter: 2019Q4

REPORT INFORMATION
  Report Type: Spontaneous
  Country: US (occurrence: US)
  Receive Date: 20191227
  Receipt Date: 20191227
  Transmission Date: 20200122
  Serious: No
  Sender: FDA-Public Use
  Company Number: US-INDIVIOR US-INDV-122148-2019

PATIENT
  Sex: Female

DRUGS (1)
  1. SUBLOCADE [Suspect]
     Active Substance: BUPRENORPHINE
     Indication: DRUG DEPENDENCE
     Dosage: 300 MILLIGRAM, QMO (SQUEEZES THE MEDICATION OUT)
     Route: 058

REACTIONS (3)
  - Injection site haematoma [Unknown]
  - Intentional removal of drug delivery system by patient [Unknown]
  - Intentional product misuse [Unknown]
